FAERS Safety Report 5834636-8 (Version None)
Quarter: 2008Q3

REPORT INFORMATION
  Report Type: 
  Country: None (occurrence: None)
  Receive Date: 20080801
  Receipt Date: 20080722
  Transmission Date: 20090109
  Serious: Yes (Other)
  Sender: FDA-Public Use
  Company Number: 1419181-2008-0008

PATIENT
  Sex: Male

DRUGS (1)
  1. CHLORHEXIDINE GLUCONATE [Suspect]
     Indication: ANTIBIOTIC PROPHYLAXIS
     Dosage: 3000MG DAILY TOPICAL
     Route: 061

REACTIONS (2)
  - BURKHOLDERIA CEPACIA INFECTION [None]
  - PHARMACEUTICAL PRODUCT COMPLAINT [None]
